FAERS Safety Report 5395188-2 (Version None)
Quarter: 2007Q3

REPORT INFORMATION
  Report Type: 
  Country: None (occurrence: None)
  Receive Date: 20070724
  Receipt Date: 20070712
  Transmission Date: 20080115
  Serious: Yes (Hospitalization)
  Sender: FDA-Public Use
  Company Number: GR-ROCHE-507019

PATIENT
  Age: 38 Year
  Sex: Female

DRUGS (2)
  1. PEG-INTERFERON A-2A (RO 25-8310) [Suspect]
     Dosage: DOSAGE: 180 MCG PER WEEK.
     Route: 065
     Dates: start: 20040201, end: 20040701
  2. RIBAVIRIN [Concomitant]
     Route: 048
     Dates: start: 20040201, end: 20040701

REACTIONS (3)
  - AUTOIMMUNE THYROIDITIS [None]
  - DIABETIC KETOACIDOSIS [None]
  - TYPE 1 DIABETES MELLITUS [None]
